FAERS Safety Report 6714267-8 (Version None)
Quarter: 2010Q2

REPORT INFORMATION
  Report Type: 
  Country: None (occurrence: None)
  Receive Date: 20100506
  Receipt Date: 20090831
  Transmission Date: 20101027
  Serious: No
  Sender: FDA-Public Use
  Company Number: US-BAUSCH-2009BL004414

PATIENT
  Age: 33 Year
  Sex: Female

DRUGS (2)
  1. LOTEMAX [Suspect]
     Indication: EYE PRURITUS
     Route: 047
     Dates: start: 20090819, end: 20090825
  2. LOTEMAX [Suspect]
     Indication: EYE IRRITATION
     Route: 047
     Dates: start: 20090819, end: 20090825

REACTIONS (3)
  - CONDITION AGGRAVATED [None]
  - EYE IRRITATION [None]
  - EYE PRURITUS [None]
